FAERS Safety Report 9163667 (Version 1)
Quarter: 2013Q1

REPORT INFORMATION
  Report Type: Report from Study
  Country: KR (occurrence: KR)
  Receive Date: 20130314
  Receipt Date: 20130314
  Transmission Date: 20140127
  Serious: Yes (Hospitalization, Other)
  Sender: FDA-Public Use
  Company Number: KR-ABBOTT-11P-090-0725464-00

PATIENT
  Age: 47 Year
  Sex: Male

DRUGS (9)
  1. KALETRA TABLETS [Suspect]
     Indication: PRODUCT USED FOR UNKNOWN INDICATION
     Dates: start: 20100524, end: 20101205
  2. ZIDOVUDINE [Suspect]
     Indication: PRODUCT USED FOR UNKNOWN INDICATION
  3. EFAVIRENZ [Concomitant]
     Indication: ANTIRETROVIRAL THERAPY
     Dosage: 6000MG, DAILY
     Dates: start: 20101209
  4. 3TC [Concomitant]
     Indication: ANTIRETROVIRAL THERAPY
     Dosage: 300MG, DAILY
     Dates: start: 20101209
  5. COMBIVIR [Concomitant]
     Indication: ANTIRETROVIRAL THERAPY
     Dosage: 900MG, DAILY
     Dates: start: 20100524, end: 20101208
  6. CYMEVENE V [Concomitant]
     Indication: CYTOMEGALOVIRUS GASTROENTERITIS
     Dosage: 890 MG DAILY
     Route: 042
     Dates: start: 20100709, end: 20100722
  7. GISONIN [Concomitant]
     Indication: LATENT TUBERCULOSIS
     Dosage: 300 MG DAILY
     Route: 048
     Dates: start: 20100507, end: 20110206
  8. GISONIN [Concomitant]
     Indication: PROPHYLAXIS
  9. SOLIFENACIN [Concomitant]
     Indication: CYSTITIS
     Dosage: 5 MG DAILY
     Route: 048
     Dates: start: 20100427, end: 20100705

REACTIONS (2)
  - Pancytopenia [Unknown]
  - Anaemia [Recovered/Resolved]
